FAERS Safety Report 17669506 (Version 1)
Quarter: 2020Q2

REPORT INFORMATION
  Report Type: Spontaneous
  Country: US (occurrence: US)
  Receive Date: 20200414
  Receipt Date: 20200414
  Transmission Date: 20200713
  Serious: No
  Sender: FDA-Public Use
  Company Number: None

PATIENT
  Age: 69 Year
  Sex: Male
  Weight: 99.41 kg

DRUGS (15)
  1. LOSARTAN POTASSIUM 100MG, ORAL [Concomitant]
  2. MULTIVITAMIN ADULTS [Concomitant]
  3. ATORVASTATIN 80MG ,ORAL [Concomitant]
  4. FINASTERIDE, 5MG, ORAL [Concomitant]
  5. FISH OIL BURPLESS [Concomitant]
  6. COENZYME Q10 [Concomitant]
     Active Substance: UBIDECARENONE
  7. GLUCOSAMINE CHONDROTIN, ORAL [Concomitant]
  8. GROUND FLAXSEED [Concomitant]
  9. CAPECITABINE. [Suspect]
     Active Substance: CAPECITABINE
     Indication: COLON CANCER
     Route: 048
     Dates: start: 20191119, end: 20200414
  10. CALCIUM CARBONATE VITAMIN D 600 - 200MG ,ORAL [Concomitant]
  11. ASPIRIN 81MG, ORAL [Concomitant]
  12. METOPROLOL TARTRATE 50MG, ORAL [Concomitant]
  13. TERBINAFINE 250MG, ORAL [Concomitant]
  14. OMEPRAZOLE 20MG, ORAL [Concomitant]
  15. TAMSULOSIN 0.4MG, ORAL [Concomitant]

REACTIONS (1)
  - Palmar-plantar erythrodysaesthesia syndrome [None]

NARRATIVE: CASE EVENT DATE: 20200414
